FAERS Safety Report 7513073-4 (Version None)
Quarter: 2011Q2

REPORT INFORMATION
  Report Type: 
  Country: None (occurrence: None)
  Receive Date: 20110531
  Receipt Date: 20110520
  Transmission Date: 20111010
  Serious: Yes (Life-Threatening)
  Sender: FDA-Public Use
  Company Number: IT-BRISTOL-MYERS SQUIBB COMPANY-15763758

PATIENT
  Sex: Male

DRUGS (1)
  1. SUSTIVA [Suspect]
     Route: 042
     Dates: start: 20110519

REACTIONS (3)
  - SHOCK [None]
  - INCORRECT ROUTE OF DRUG ADMINISTRATION [None]
  - METABOLIC ACIDOSIS [None]
